FAERS Safety Report 6193770-6 (Version None)
Quarter: 2009Q2

REPORT INFORMATION
  Report Type: 
  Country: None (occurrence: None)
  Receive Date: 20090506
  Receipt Date: 20090506
  Transmission Date: 20091009
  Serious: Yes (Other)
  Sender: FDA-Public Use
  Company Number: AEUSA200900119

PATIENT
  Age: 9 Year
  Sex: Female
  Weight: 24.4942 kg

DRUGS (7)
  1. IMMUNE GLOBULIN INTRAVENOUS (HUMAN) [Suspect]
     Indication: IMMUNODEFICIENCY COMMON VARIABLE
     Dosage: 10 GM;QM;IV
     Route: 042
     Dates: start: 20040101, end: 20090402
  2. IMMUNE GLOBULIN INTRAVENOUS (HUMAN) [Suspect]
  3. IMMUNE GLOBULIN INTRAVENOUS (HUMAN) [Suspect]
  4. IMMUNE GLOBULIN INTRAVENOUS (HUMAN) [Suspect]
  5. IMMUNE GLOBULIN INTRAVENOUS (HUMAN) [Suspect]
  6. TOPAMAX [Concomitant]
  7. OXYBUTYNIN CHLORIDE [Concomitant]

REACTIONS (4)
  - ANTI-HBC IGG ANTIBODY POSITIVE [None]
  - FATIGUE [None]
  - IMMUNISATION [None]
  - PYREXIA [None]
